FAERS Safety Report 25104789 (Version 3)
Quarter: 2025Q2

REPORT INFORMATION
  Report Type: Spontaneous
  Country: US (occurrence: US)
  Receive Date: 20250321
  Receipt Date: 20250529
  Transmission Date: 20250716
  Serious: Yes (Other)
  Sender: AUROBINDO
  Company Number: US-AUROBINDO-AUR-APL-2025-014718

PATIENT
  Age: 9 Year
  Sex: Female

DRUGS (14)
  1. CLOBAZAM [Suspect]
     Active Substance: CLOBAZAM
     Indication: Severe myoclonic epilepsy of infancy
     Route: 065
  2. LEVETIRACETAM [Suspect]
     Active Substance: LEVETIRACETAM
     Indication: Seizure
     Dosage: 80 MILLIGRAM/KILOGRAM, ONCE A DAY
     Route: 065
  3. LEVETIRACETAM [Suspect]
     Active Substance: LEVETIRACETAM
     Indication: Severe myoclonic epilepsy of infancy
  4. DIAZEPAM [Suspect]
     Active Substance: DIAZEPAM
     Indication: Seizure
     Route: 054
  5. DIVALPROEX SODIUM [Suspect]
     Active Substance: DIVALPROEX SODIUM
     Indication: Severe myoclonic epilepsy of infancy
     Dosage: 34 MILLIGRAM/KILOGRAM, ONCE A DAY
     Route: 065
  6. LAMOTRIGINE [Suspect]
     Active Substance: LAMOTRIGINE
     Indication: Seizure
     Route: 065
  7. LAMOTRIGINE [Suspect]
     Active Substance: LAMOTRIGINE
     Indication: Severe myoclonic epilepsy of infancy
  8. TOPIRAMATE [Suspect]
     Active Substance: TOPIRAMATE
     Indication: Seizure
     Dosage: 11.5 MILLIGRAM/KILOGRAM, ONCE A DAY
     Route: 065
  9. CARBAMAZEPINE [Suspect]
     Active Substance: CARBAMAZEPINE
     Indication: Seizure
     Route: 065
  10. CARBAMAZEPINE [Suspect]
     Active Substance: CARBAMAZEPINE
     Indication: Severe myoclonic epilepsy of infancy
  11. CANNABIDIOL [Suspect]
     Active Substance: CANNABIDIOL
     Indication: Severe myoclonic epilepsy of infancy
     Dosage: 18 MILLIGRAM/KILOGRAM, ONCE A DAY
     Route: 065
  12. FENFLURAMINE [Suspect]
     Active Substance: FENFLURAMINE
     Indication: Severe myoclonic epilepsy of infancy
     Dosage: 0.6 MILLIGRAM/KILOGRAM, ONCE A DAY
     Route: 065
  13. VALPROIC ACID [Suspect]
     Active Substance: VALPROIC ACID
     Indication: Severe myoclonic epilepsy of infancy
     Dosage: 34 MILLIGRAM/KILOGRAM, ONCE A DAY
     Route: 065
  14. CENOBAMATE [Concomitant]
     Active Substance: CENOBAMATE
     Indication: Behaviour disorder
     Route: 065

REACTIONS (3)
  - Pancreatitis [Unknown]
  - Treatment failure [Unknown]
  - Drug ineffective [Unknown]
